FAERS Safety Report 6607672-1 (Version None)
Quarter: 2010Q1

REPORT INFORMATION
  Report Type: 
  Country: None (occurrence: None)
  Receive Date: 20100223
  Receipt Date: 20100208
  Transmission Date: 20100710
  Serious: Yes (Death, Hospitalization)
  Sender: FDA-Public Use
  Company Number: AMAG201000084

PATIENT
  Age: 62 Year
  Sex: Female
  Weight: 108.1 kg

DRUGS (13)
  1. FERAHEME [Suspect]
     Indication: IRON DEFICIENCY ANAEMIA
     Dosage: 510 MG, SINGLE, INTRAVENOUS
     Route: 042
     Dates: start: 20100125, end: 20100125
  2. FERAHEME [Suspect]
     Indication: RENAL FAILURE CHRONIC
     Dosage: 510 MG, SINGLE, INTRAVENOUS
     Route: 042
     Dates: start: 20100125, end: 20100125
  3. PLAVIX [Concomitant]
  4. ASPIRIN [Concomitant]
  5. METOPROLOL TARTRATE [Concomitant]
  6. LIPITOR [Concomitant]
  7. LASIX [Concomitant]
  8. LEVOXYL [Concomitant]
  9. NOVOLOG [Concomitant]
  10. LEVEMIR (INSULIN DETERMIR) [Concomitant]
  11. GABAPENTIN [Concomitant]
  12. CYMBALTA [Concomitant]
  13. DARVOCET [Concomitant]

REACTIONS (13)
  - ACUTE MYOCARDIAL INFARCTION [None]
  - CARDIAC ARREST [None]
  - CEREBROVASCULAR ACCIDENT [None]
  - CONVULSION [None]
  - DIARRHOEA [None]
  - GENERAL PHYSICAL HEALTH DETERIORATION [None]
  - HEART RATE INCREASED [None]
  - HYPOTENSION [None]
  - HYPOVOLAEMIA [None]
  - LETHARGY [None]
  - PAINFUL RESPIRATION [None]
  - PULSE ABSENT [None]
  - UNRESPONSIVE TO STIMULI [None]
